FAERS Safety Report 12636547 (Version 1)
Quarter: 2016Q3

REPORT INFORMATION
  Report Type: Spontaneous
  Country: FR (occurrence: FR)
  Receive Date: 20160809
  Receipt Date: 20160809
  Transmission Date: 20161109
  Serious: Yes (Hospitalization, Other)
  Sender: FDA-Public Use
  Company Number: FR-ASTRAZENECA-2016SE84968

PATIENT
  Age: 25183 Day
  Sex: Female
  Weight: 56 kg

DRUGS (13)
  1. BISOPROLOL [Concomitant]
     Active Substance: BISOPROLOL
     Route: 048
  2. PERFALGAN [Concomitant]
     Active Substance: ACETAMINOPHEN
     Route: 048
  3. LASILIX [Concomitant]
     Active Substance: FUROSEMIDE
     Route: 048
  4. DUPHALAC [Concomitant]
     Active Substance: LACTULOSE
     Route: 048
  5. ZAMUDOL SR [Suspect]
     Active Substance: TRAMADOL HYDROCHLORIDE
     Route: 048
     Dates: end: 20160521
  6. IMOVANE [Suspect]
     Active Substance: ZOPICLONE
     Route: 048
     Dates: end: 20160521
  7. INEXIUM [Suspect]
     Active Substance: ESOMEPRAZOLE
     Route: 048
     Dates: end: 20160521
  8. OROZAMUDOL [Suspect]
     Active Substance: TRAMADOL
     Dosage: 1 TO 3 DF PER DAY
     Route: 048
     Dates: end: 20160521
  9. PANTOPRAZOLE [Concomitant]
     Active Substance: PANTOPRAZOLE SODIUM
     Route: 048
  10. GAVISCON [Concomitant]
     Active Substance: ALUMINUM HYDROXIDE\MAGNESIUM CARBONATE
     Route: 048
  11. LERCAN [Concomitant]
     Active Substance: LERCANIDIPINE
  12. VIDAZA [Suspect]
     Active Substance: AZACITIDINE
     Indication: ACUTE MYELOID LEUKAEMIA
     Route: 058
     Dates: end: 20160519
  13. PIPERACILLIN, TAZOBACTAM [Suspect]
     Active Substance: PIPERACILLIN SODIUM\TAZOBACTAM SODIUM
     Indication: ANAL ABSCESS
     Route: 042

REACTIONS (8)
  - Urticaria [Recovered/Resolved]
  - Febrile bone marrow aplasia [Recovered/Resolved]
  - Eyelid oedema [Recovered/Resolved]
  - Anaphylactic reaction [Recovered/Resolved]
  - Pneumonitis [Unknown]
  - Circulatory collapse [Recovered/Resolved]
  - Atrial fibrillation [Unknown]
  - Pruritus [Unknown]

NARRATIVE: CASE EVENT DATE: 20160521
